FAERS Safety Report 14927531 (Version 6)
Quarter: 2018Q3

REPORT INFORMATION
  Report Type: Report from Study
  Country: RU (occurrence: RU)
  Receive Date: 20180523
  Receipt Date: 20180912
  Transmission Date: 20181010
  Serious: Yes (Death)
  Sender: FDA-Public Use
  Company Number: PHHO2018RU006525

PATIENT
  Age: 38 Year
  Sex: Female
  Weight: 69 kg

DRUGS (10)
  1. LACTULOSE. [Concomitant]
     Active Substance: LACTULOSE
     Indication: CONSTIPATION
     Dosage: 30 ML, PRN
     Route: 048
     Dates: start: 20171013, end: 20171013
  2. LETROZOLE. [Suspect]
     Active Substance: LETROZOLE
     Indication: BREAST CANCER
     Dosage: 2.5 MG, QD
     Route: 048
     Dates: start: 20170908
  3. CYCLOPHOSPHAMIDUM [Concomitant]
     Active Substance: CYCLOPHOSPHAMIDE
     Indication: PROPHYLAXIS
     Dosage: UNK
     Route: 065
     Dates: start: 20170629, end: 20170814
  4. INHALIPT [Concomitant]
     Indication: OROPHARYNGEAL PAIN
     Dosage: 2, TID
     Route: 048
     Dates: start: 20170913, end: 20170913
  5. SUPRASTIN [Concomitant]
     Active Substance: CHLOROPYRAMINE HYDROCHLORIDE
     Indication: RASH
     Dosage: 25 MG, PRN
     Route: 048
     Dates: start: 20171212, end: 20171215
  6. LEE011 [Suspect]
     Active Substance: RIBOCICLIB
     Indication: BREAST CANCER
     Dosage: 600 MG, QD
     Route: 048
     Dates: start: 20170908
  7. ZOLEDRONIC ACID [Concomitant]
     Active Substance: ZOLEDRONIC ACID
     Indication: BREAST CANCER
     Dosage: 4 MG, QMO
     Route: 042
     Dates: start: 20170629, end: 20180419
  8. LACTULOSE. [Concomitant]
     Active Substance: LACTULOSE
     Dosage: 30 ML, PRN
     Route: 048
     Dates: start: 20171020, end: 20171020
  9. DOXORUBICIN [Concomitant]
     Active Substance: DOXORUBICIN
     Indication: PROPHYLAXIS
     Dosage: UNK
     Route: 065
     Dates: start: 20170629, end: 20170814
  10. MICROLAX [Concomitant]
     Indication: CONSTIPATION
     Dosage: 5 ML, QD
     Route: 054
     Dates: start: 20180313, end: 20180314

REACTIONS (1)
  - Toxicity to various agents [Fatal]

NARRATIVE: CASE EVENT DATE: 20180512
